FAERS Safety Report 4971244-5 (Version None)
Quarter: 2006Q2

REPORT INFORMATION
  Report Type: 
  Country: None (occurrence: None)
  Receive Date: 20060413
  Receipt Date: 20060307
  Transmission Date: 20061013
  Serious: Yes (Hospitalization)
  Sender: FDA-Public Use
  Company Number: US-MERCK-0603USA01271

PATIENT
  Age: 59 Year
  Sex: Female
  Weight: 105 kg

DRUGS (8)
  1. VIOXX [Suspect]
     Indication: PAIN
     Route: 048
     Dates: start: 20000101, end: 20041001
  2. NORVASC [Concomitant]
     Route: 065
  3. ASPIRIN [Concomitant]
     Route: 065
  4. FUROSEMIDE [Concomitant]
     Route: 065
  5. LOVASTATIN [Concomitant]
     Route: 065
  6. GLYBURIDE [Concomitant]
     Route: 065
  7. TOPROL-XL [Concomitant]
     Route: 065
  8. PRAVACHOL [Concomitant]
     Route: 065

REACTIONS (4)
  - ANXIETY [None]
  - CARDIAC DISORDER [None]
  - CORONARY ARTERY OCCLUSION [None]
  - MYOCARDIAL INFARCTION [None]
